FAERS Safety Report 5635629-6 (Version None)
Quarter: 2008Q1

REPORT INFORMATION
  Report Type: 
  Country: None (occurrence: None)
  Receive Date: 20080219
  Receipt Date: 20080103
  Transmission Date: 20080703
  Serious: Yes (Other)
  Sender: FDA-Public Use
  Company Number: 66458

PATIENT
  Age: 16 Year
  Sex: Male

DRUGS (1)
  1. MIGRAINE PAIN RELIEVER/ PERRIGO [Suspect]
     Dosage: 2 TABLETS/ X1/ ORAL
     Route: 048
     Dates: start: 20070401, end: 20070401

REACTIONS (1)
  - DRUG HYPERSENSITIVITY [None]
